FAERS Safety Report 7423243-1 (Version None)
Quarter: 2011Q1

REPORT INFORMATION
  Report Type: 
  Country: None (occurrence: None)
  Receive Date: 20110302
  Receipt Date: 20110119
  Transmission Date: 20110831
  Serious: No
  Sender: FDA-Public Use
  Company Number: 024768

PATIENT
  Sex: Female
  Weight: 134 kg

DRUGS (7)
  1. METHYLPREDNISOLONE [Concomitant]
  2. VENLAFAXINE HCL [Concomitant]
  3. TOPIRAMATE [Concomitant]
  4. CIMZIA [Suspect]
     Indication: CROHN'S DISEASE
     Dosage: (400 MG 1X/MONTH SUBCUTANEOUS)
     Route: 058
     Dates: start: 20100615
  5. CLONAZEPAM [Concomitant]
  6. NORETHINDRONE [Concomitant]
  7. MERCAPTOPURINE [Concomitant]

REACTIONS (1)
  - INFLUENZA [None]
